FAERS Safety Report 8143866-4 (Version None)
Quarter: 2012Q1

REPORT INFORMATION
  Report Type: 
  Country: None (occurrence: None)
  Receive Date: 20120217
  Receipt Date: 20120213
  Transmission Date: 20120608
  Serious: Yes (Other)
  Sender: FDA-Public Use
  Company Number: US-PFIZER INC-2012027627

PATIENT
  Sex: Female
  Weight: 87.982 kg

DRUGS (5)
  1. PROCARDIA XL [Concomitant]
     Dosage: UNK
  2. LIPITOR [Concomitant]
     Dosage: UNK
  3. XALATAN [Concomitant]
     Dosage: UNK
  4. GLUCOTROL [Suspect]
     Indication: DIABETES MELLITUS
     Dosage: UNK
  5. GLUCOTROL XL [Suspect]
     Indication: DIABETES MELLITUS
     Dosage: 10 MG, 2X/DAY
     Route: 048

REACTIONS (2)
  - BLOOD GLUCOSE ABNORMAL [None]
  - DRUG INEFFECTIVE [None]
